FAERS Safety Report 5627489-4 (Version None)
Quarter: 2008Q1

REPORT INFORMATION
  Report Type: 
  Country: None (occurrence: None)
  Receive Date: 20080215
  Receipt Date: 20080117
  Transmission Date: 20080703
  Serious: No
  Sender: FDA-Public Use
  Company Number: A0684391A

PATIENT
  Age: 45 Year
  Sex: Male

DRUGS (7)
  1. COREG CR [Suspect]
     Indication: TACHYCARDIA
     Dosage: 10MG PER DAY
     Route: 048
     Dates: start: 20071001
  2. SINGULAIR [Concomitant]
  3. ATIVAN [Concomitant]
  4. DYAZIDE [Concomitant]
  5. ALLEGRA [Concomitant]
  6. LOVISCOL [Concomitant]
  7. RISPERDAL [Concomitant]

REACTIONS (5)
  - ERYTHEMA [None]
  - OEDEMA [None]
  - PAIN IN EXTREMITY [None]
  - PARAESTHESIA [None]
  - PIGMENTATION DISORDER [None]
